FAERS Safety Report 20833026 (Version 1)
Quarter: 2022Q2

REPORT INFORMATION
  Report Type: Spontaneous
  Country: GB (occurrence: GB)
  Receive Date: 20220516
  Receipt Date: 20220516
  Transmission Date: 20220721
  Serious: Yes (Hospitalization, Other)
  Sender: FDA-Public Use
  Company Number: GB-PFIZER INC-202200504971

PATIENT
  Age: 39 Year
  Sex: Female

DRUGS (2)
  1. DEPO-PROVERA [Suspect]
     Active Substance: MEDROXYPROGESTERONE ACETATE
     Indication: Contraception
     Dosage: UNK
     Dates: start: 2002
  2. DEPO-PROVERA [Suspect]
     Active Substance: MEDROXYPROGESTERONE ACETATE
     Dosage: UNK
     Dates: start: 202203

REACTIONS (5)
  - Hormone level abnormal [Unknown]
  - Premenstrual dysphoric disorder [Recovering/Resolving]
  - Abnormal behaviour [Unknown]
  - Suicide attempt [Recovering/Resolving]
  - Therapeutic response unexpected [Unknown]
